FAERS Safety Report 14837612 (Version 3)
Quarter: 2018Q2

REPORT INFORMATION
  Report Type: Report from Study
  Country: CA (occurrence: CA)
  Receive Date: 20180502
  Receipt Date: 20180531
  Transmission Date: 20180711
  Serious: Yes (Hospitalization)
  Sender: FDA-Public Use
  Company Number: CA-JNJFOC-20180118051

PATIENT
  Age: 50 Year
  Sex: Female
  Weight: 42 kg

DRUGS (1)
  1. REMICADE [Suspect]
     Active Substance: INFLIXIMAB
     Indication: RHEUMATOID ARTHRITIS
     Route: 042

REACTIONS (7)
  - Arthralgia [Not Recovered/Not Resolved]
  - Pallor [Unknown]
  - Drug effect decreased [Unknown]
  - Respiratory arrest [Unknown]
  - Fatigue [Unknown]
  - Respiratory tract infection [Not Recovered/Not Resolved]
  - Joint swelling [Unknown]

NARRATIVE: CASE EVENT DATE: 201804
